FAERS Safety Report 13234142 (Version 1)
Quarter: 2017Q1

REPORT INFORMATION
  Report Type: Spontaneous
  Country: US (occurrence: US)
  Receive Date: 20170215
  Receipt Date: 20170215
  Transmission Date: 20170428
  Serious: No
  Sender: FDA-Public Use
  Company Number: None

PATIENT
  Age: 35 Year
  Sex: Male
  Weight: 111.6 kg

DRUGS (3)
  1. ALPRAZOLAM ER [Suspect]
     Active Substance: ALPRAZOLAM
     Indication: ANXIETY DISORDER
     Dosage: ?          QUANTITY:1 TABLET(S);?
     Route: 048
     Dates: start: 20160801, end: 20161231
  2. CYMBALTA [Concomitant]
     Active Substance: DULOXETINE HYDROCHLORIDE
  3. INVEGA [Concomitant]
     Active Substance: PALIPERIDONE

REACTIONS (4)
  - Drug ineffective [None]
  - Tension headache [None]
  - Product substitution issue [None]
  - Stress [None]

NARRATIVE: CASE EVENT DATE: 20161011
